FAERS Safety Report 21331777 (Version 1)
Quarter: 2022Q3

REPORT INFORMATION
  Report Type: Spontaneous
  Country: NL (occurrence: NL)
  Receive Date: 20220914
  Receipt Date: 20220914
  Transmission Date: 20221026
  Serious: Yes (Other)
  Sender: FDA-Public Use
  Company Number: None

PATIENT
  Sex: Female
  Weight: 88 kg

DRUGS (20)
  1. GABAPENTIN [Suspect]
     Active Substance: GABAPENTIN
     Indication: Neuropathy peripheral
     Dosage: 200 GRAM DAILY; 2X A DAY 1 PIECE, GABAPENTINE CAPSULE 100MG / BRAND NAME NOT SPECIFIED
     Dates: start: 20220209, end: 20220214
  2. DIAZEPAM [Suspect]
     Active Substance: DIAZEPAM
     Indication: Sleep disorder
     Dosage: 2 MILLIGRAM DAILY; 1 X A DAY 1 PIECE IN THE EVENING, DIAZEPAM TABLET  2MG / BRAND NAME NOT SPECIFIED
     Dates: start: 20210809
  3. DIAZEPAM [Suspect]
     Active Substance: DIAZEPAM
     Dosage: DIAZEPAM TABLET  2MG / BRAND NAME NOT SPECIFIED, THERAPY START DATE AND END DATE : ASKU
  4. FUROSEMIDE [Concomitant]
     Active Substance: FUROSEMIDE
     Indication: Product used for unknown indication
     Dosage: 40MG, FUROSEMIDE / BRAND NAME NOT SPECIFIED, THERAPY START DATE AND END DATE : ASKU
  5. HYDROXOCOBALAMIN HYDROCHLORIDE [Concomitant]
     Active Substance: HYDROXOCOBALAMIN HYDROCHLORIDE
     Indication: Product used for unknown indication
     Dosage: 1MG/1ML, HYDROXOCOBALAMINE INJVLST  500UG/ML (HCL) / HYDROCOBAMINE INJVLST 500MCG/ML AMPUL 2ML, THER
  6. AMLODIPINE [Concomitant]
     Active Substance: AMLODIPINE BESYLATE
     Indication: Product used for unknown indication
     Dosage: AMLODIPINE TABLET 5MG / BRAND NAME NOT SPECIFIED, THERAPY START DATE AND END DATE : ASKU
  7. METOPROLOL SUCCINATE [Concomitant]
     Active Substance: METOPROLOL SUCCINATE
     Indication: Product used for unknown indication
     Dosage: 95MG, METOPROLOL TABLET MGA 100MG (SUCCINAAT) / BRAND NAME NOT SPECIFIED, THERAPY START DATE AND EN
  8. PREDNISONE [Concomitant]
     Active Substance: PREDNISONE
     Indication: Product used for unknown indication
     Dosage: 1MG, PREDNISON / BRAND NAME NOT SPECIFIED, THERAPY START DATE AND END DATE : ASKU
  9. APIXABAN [Concomitant]
     Active Substance: APIXABAN
     Indication: Product used for unknown indication
     Dosage: APIXABAN TABLET 5MG / BRAND NAME NOT SPECIFIED, THERAPY START DATE AND END DATE : ASKU
  10. IRBESARTAN [Concomitant]
     Active Substance: IRBESARTAN
     Indication: Product used for unknown indication
     Dosage: IRBESARTAN TABLET 300MG / BRAND NAME NOT SPECIFIED, THERAPY START DATE AND END DATE : ASKU
  11. ESOMEPRAZOLE [Concomitant]
     Active Substance: ESOMEPRAZOLE
     Indication: Product used for unknown indication
     Dosage: ESOMEPRAZOL CAPSULE MSR 40MG / BRAND NAME NOT SPECIFIED, THERAPY START DATE AND END DATE : ASKU
  12. METHYLPREDNISOLONE [Concomitant]
     Active Substance: METHYLPREDNISOLONE
     Indication: Product used for unknown indication
     Dosage: TOPICAL 0,1% 15MG, METHYLPREDNISOLON / BRAND NAME NOT SPECIFIED, THERAPY START DATE AND END DATE : A
     Route: 061
  13. BUDESONIDE\FORMOTEROL [Concomitant]
     Active Substance: BUDESONIDE\FORMOTEROL
     Indication: Product used for unknown indication
     Dosage: BUDESONIDE/FORMOTEROL AEROSOL 200/6UG/DO / BRAND NAME NOT SPECIFIED, THERAPY START DATE AND END DATE
  14. ROSUVASTATIN [Concomitant]
     Active Substance: ROSUVASTATIN
     Indication: Product used for unknown indication
     Dosage: ROSUVASTATINE TABLET 10MG / BRAND NAME NOT SPECIFIED, THERAPY START DATE AND END DATE : ASKU
  15. BUPRENORPHINE [Concomitant]
     Active Substance: BUPRENORPHINE
     Indication: Product used for unknown indication
     Dosage: BUPRENORFINE PLASTER 10UG/HOUR / BRAND NAME NOT SPECIFIED
  16. ACETAMINOPHEN [Concomitant]
     Active Substance: ACETAMINOPHEN
     Indication: Product used for unknown indication
     Dosage: PARACETAMOL CAPSULE 500MG / BRAND NAME NOT SPECIFIED, THERAPY START DATE AND END DATE : ASKU
  17. ISOSORBIDE MONONITRATE [Concomitant]
     Active Substance: ISOSORBIDE MONONITRATE
     Indication: Product used for unknown indication
     Dosage: ISOSORBIDEMONONITRAAT TABLET MGA  60MG / BRAND NAME NOT SPECIFIED, THERAPY START DATE AND END DATE :
  18. METHYLDOPA [Concomitant]
     Active Substance: METHYLDOPA
     Indication: Product used for unknown indication
     Dosage: METHYLDOPA TABLET 250MG / BRAND NAME NOT SPECIFIED, THERAPY START DATE AND END DATE : ASKU
  19. CHOLECALCIFEROL [Concomitant]
     Active Substance: CHOLECALCIFEROL
     Indication: Product used for unknown indication
     Dosage: 1000IU, COLECALCIFEROL / BRAND NAME NOT SPECIFIED, THERAPY START DATE AND END DATE : ASKU
  20. PROLIA [Concomitant]
     Active Substance: DENOSUMAB
     Indication: Product used for unknown indication
     Dosage: INJECTION LIQUID, DENOSUMAB INJVLST 60MG/ML / PROLIA 60 INJVLST 60MG/ML WWSP 1ML, THERAPY START DATE

REACTIONS (2)
  - Hallucination [Recovered/Resolved]
  - Dizziness [Recovered/Resolved]
